FAERS Safety Report 10355165 (Version 1)
Quarter: 2014Q3

REPORT INFORMATION
  Report Type: Spontaneous
  Country: US (occurrence: None)
  Receive Date: 20140729
  Receipt Date: 20140729
  Transmission Date: 20150326
  Serious: Yes (Hospitalization)
  Sender: FDA-Public Use
  Company Number: US-H14001-14-00271

PATIENT
  Age: 33 Year
  Sex: Female

DRUGS (5)
  1. LEVETIRACETAM (LEVETIRACETAM) [Suspect]
     Active Substance: LEVETIRACETAM
     Indication: EPILEPSY
     Dosage: 1000 MG (500 MG, 2 IN 1 D), UNKNOWN
  2. DIPHENHYDRAMINE (DIPHENHYDRAMINE) [Suspect]
     Active Substance: DIPHENHYDRAMINE
     Indication: PSYCHOTIC DISORDER
     Route: 030
  3. ANTIBIOTICS (ANTIBIOTICS) [Concomitant]
     Active Substance: UNSPECIFIED INGREDIENT
  4. METHADONE [Concomitant]
     Active Substance: METHADONE HYDROCHLORIDE
  5. LORAZEPAM (LORAZEPAM) [Suspect]
     Active Substance: LORAZEPAM
     Indication: PSYCHOTIC DISORDER
     Route: 030

REACTIONS (11)
  - Abnormal behaviour [None]
  - Agitation [None]
  - Aggression [None]
  - Memory impairment [None]
  - Treatment noncompliance [None]
  - Mental status changes [None]
  - Hallucination, auditory [None]
  - Paranoia [None]
  - Inappropriate affect [None]
  - Screaming [None]
  - Poor quality sleep [None]
